FAERS Safety Report 9444128 (Version 1)
Quarter: 2013Q3

REPORT INFORMATION
  Report Type: Spontaneous
  Country: US (occurrence: None)
  Receive Date: 20130806
  Receipt Date: 20130806
  Transmission Date: 20140515
  Serious: No
  Sender: FDA-Public Use
  Company Number: None

PATIENT
  Age: 63 Year
  Sex: Female
  Weight: 90.72 kg

DRUGS (4)
  1. SULFAMETHOXAZOLE [Suspect]
     Indication: EYELID INFECTION
     Dosage: 2 TABS 2X(Q12HRS) ORAL
     Route: 048
     Dates: start: 20130712, end: 20130719
  2. SULFAMETHOXAZOLE [Suspect]
     Indication: CELLULITIS
     Dosage: 2 TABS 2X(Q12HRS) ORAL
     Route: 048
     Dates: start: 20130712, end: 20130719
  3. LISINOPRIL [Concomitant]
  4. HYDROCHLOROTHIAZIDE [Concomitant]

REACTIONS (3)
  - Rash [None]
  - Malaise [None]
  - Hypersensitivity [None]
